FAERS Safety Report 4634370-6 (Version None)
Quarter: 2005Q2

REPORT INFORMATION
  Report Type: 
  Country: None (occurrence: None)
  Receive Date: 20050411
  Receipt Date: 20050328
  Transmission Date: 20051028
  Serious: Yes (Death)
  Sender: FDA-Public Use
  Company Number: 2005051066

PATIENT
  Age: 65 Year
  Sex: Male

DRUGS (4)
  1. CABERGOLINE [Suspect]
     Indication: PARKINSON'S DISEASE
     Dosage: 2 MG DAILY, ORAL; 4-6MG DAILY, ORAL
     Route: 048
     Dates: start: 20030413, end: 20041107
  2. CABERGOLINE [Suspect]
     Indication: PARKINSON'S DISEASE
     Dosage: 2 MG DAILY, ORAL; 4-6MG DAILY, ORAL
     Route: 048
     Dates: start: 20041108, end: 20050126
  3. LEVODOPA W/BENSERAZIDE/ (BENSERAZIDE, LEVODOPA) [Concomitant]
  4. ENTACAPONE (ENTACAPONE) [Concomitant]

REACTIONS (2)
  - CHRONIC OBSTRUCTIVE AIRWAYS DISEASE EXACERBATED [None]
  - RESPIRATORY FAILURE [None]
